FAERS Safety Report 4466618-5 (Version None)
Quarter: 2004Q3

REPORT INFORMATION
  Report Type: 
  Country: None (occurrence: None)
  Receive Date: 20040928
  Receipt Date: 20040928
  Transmission Date: 20050211
  Serious: Yes (Hospitalization)
  Sender: FDA-Public Use
  Company Number: None

PATIENT
  Sex: Female
  Weight: 50.3493 kg

DRUGS (12)
  1. VALPROIC ACID [Suspect]
     Indication: ACUTE MYELOID LEUKAEMIA
     Dosage: 25MG/M2 PO
     Route: 048
     Dates: start: 20040915, end: 20040919
  2. VALPROIC ACID [Suspect]
     Indication: ACUTE MYELOID LEUKAEMIA
     Dosage: 30 MG/M2 PO
     Route: 048
     Dates: start: 20040920, end: 20040923
  3. VFEND [Concomitant]
  4. AMPHOB [Concomitant]
  5. EFFEXOR [Concomitant]
  6. XANAX [Concomitant]
  7. POTASSIUM [Concomitant]
  8. NYSTATIN [Concomitant]
  9. IMIPENEM [Concomitant]
  10. MORPHINE SULFATE [Concomitant]
  11. OXYCODONE HCL [Concomitant]
  12. AMBIEN [Concomitant]

REACTIONS (9)
  - BLOOD LACTATE DEHYDROGENASE INCREASED [None]
  - CONFUSIONAL STATE [None]
  - FEBRILE NEUTROPENIA [None]
  - HYPOXIA [None]
  - LETHARGY [None]
  - MENTAL DISORDER [None]
  - NEUROTOXICITY [None]
  - PAIN IN EXTREMITY [None]
  - SUBDURAL HAEMATOMA [None]
